FAERS Safety Report 17317116 (Version 1)
Quarter: 2020Q1

REPORT INFORMATION
  Report Type: Spontaneous
  Country: GB (occurrence: GB)
  Receive Date: 20200124
  Receipt Date: 20200124
  Transmission Date: 20200409
  Serious: Yes (Other)
  Sender: FDA-Public Use
  Company Number: GB-MYLANLABS-2020M1007377

PATIENT
  Age: 30 Year
  Sex: Male
  Weight: 76 kg

DRUGS (4)
  1. AZATHIOPRINE. [Suspect]
     Active Substance: AZATHIOPRINE
     Indication: CROHN^S DISEASE
     Dosage: 3 DOSAGE FORM
     Route: 048
     Dates: start: 20150201
  2. CORTISONE [Suspect]
     Active Substance: CORTISONE
     Indication: CROHN^S DISEASE
     Dosage: 8 DOSAGE FORM
     Route: 048
     Dates: start: 20150101
  3. SIMETHICONE (DIMETHICONE) [Concomitant]
     Active Substance: DIMETHICONE
     Dosage: UNK
  4. MESALAZINE [Suspect]
     Active Substance: MESALAMINE
     Indication: CROHN^S DISEASE
     Dosage: 3 DOSAGE FORM
     Route: 048
     Dates: start: 20150101

REACTIONS (1)
  - Cushing^s syndrome [Not Recovered/Not Resolved]

NARRATIVE: CASE EVENT DATE: 20160101
